FAERS Safety Report 7986533-X (Version None)
Quarter: 2011Q4

REPORT INFORMATION
  Report Type: 
  Country: None (occurrence: None)
  Receive Date: 20111216
  Receipt Date: 20110722
  Transmission Date: 20120403
  Serious: No
  Sender: FDA-Public Use
  Company Number: US-BRISTOL-MYERS SQUIBB COMPANY-15919038

PATIENT
  Age: 7 Year
  Sex: Female

DRUGS (2)
  1. ABILIFY [Suspect]
     Indication: OPPOSITIONAL DEFIANT DISORDER
     Dosage: DOSE DECREASED TO 2MG BID AND THEN DISCONTINUED.
  2. ABILIFY [Suspect]
     Indication: ATTENTION DEFICIT/HYPERACTIVITY DISORDER
     Dosage: DOSE DECREASED TO 2MG BID AND THEN DISCONTINUED.

REACTIONS (6)
  - FATIGUE [None]
  - OEDEMA PERIPHERAL [None]
  - WEIGHT INCREASED [None]
  - EXERCISE TOLERANCE DECREASED [None]
  - DYSKINESIA [None]
  - VOMITING [None]
